FAERS Safety Report 22679961 (Version 5)
Quarter: 2025Q1

REPORT INFORMATION
  Report Type: Spontaneous
  Country: BR (occurrence: BR)
  Receive Date: 20230707
  Receipt Date: 20250303
  Transmission Date: 20250409
  Serious: Yes (Other)
  Sender: BAYER HEALTHCARE PHARMACEUTICALS INC.
  Company Number: BR-BAYER-2023A057692

PATIENT
  Age: 41 Year
  Sex: Female

DRUGS (1)
  1. MIRENA [Suspect]
     Active Substance: LEVONORGESTREL
     Dosage: 20?G/DAY
     Route: 015
     Dates: start: 20230214, end: 20230520

REACTIONS (14)
  - Hepatotoxicity [Recovered/Resolved]
  - Heavy menstrual bleeding [Recovering/Resolving]
  - Abdominal pain [Not Recovered/Not Resolved]
  - Pain [None]
  - Pain in extremity [Recovered/Resolved]
  - Urticaria [Recovering/Resolving]
  - Alopecia [Not Recovered/Not Resolved]
  - Acne [Not Recovered/Not Resolved]
  - Headache [None]
  - Dysmenorrhoea [Not Recovered/Not Resolved]
  - Panic reaction [None]
  - Hepatomegaly [None]
  - Fatigue [None]
  - Eye swelling [None]

NARRATIVE: CASE EVENT DATE: 20230214
